FAERS Safety Report 23116469 (Version 2)
Quarter: 2023Q4

REPORT INFORMATION
  Report Type: Spontaneous
  Country: US (occurrence: US)
  Receive Date: 20231027
  Receipt Date: 20231110
  Transmission Date: 20240109
  Serious: Yes (Other)
  Sender: FDA-Public Use
  Company Number: US-REGENERON PHARMACEUTICALS, INC.-2023-130908

PATIENT
  Sex: Female

DRUGS (2)
  1. EYLEA [Suspect]
     Active Substance: AFLIBERCEPT
     Indication: Diabetic retinopathy
     Dosage: UNK, LEFT EYE (PATIENT ON TREATMENT FOR BOTH EYES) ; PRE-FILLED SYRINGE (GERRESHEIMER)
     Route: 031
  2. EYLEA [Suspect]
     Active Substance: AFLIBERCEPT
     Indication: Diabetic retinal oedema
     Dosage: 2 MG, Q6W (EVERY 6 WEEKS), RIGHT EYE, FORMULATION: PRE-FILLED SYRINGE (GERRESHEIMER)
     Dates: start: 20230907

REACTIONS (3)
  - Retinal ischaemia [Unknown]
  - Product administration error [Unknown]
  - Adverse event [Unknown]

NARRATIVE: CASE EVENT DATE: 20230101
